FAERS Safety Report 15210988 (Version 3)
Quarter: 2018Q3

REPORT INFORMATION
  Report Type: Spontaneous
  Country: US (occurrence: US)
  Receive Date: 20180728
  Receipt Date: 20180823
  Transmission Date: 20181010
  Serious: No
  Sender: FDA-Public Use
  Company Number: US-JNJFOC-20180713379

PATIENT
  Sex: Male
  Weight: 124.74 kg

DRUGS (2)
  1. RISPERDAL M?TAB [Suspect]
     Active Substance: RISPERIDONE
     Indication: SCHIZOPHRENIA
     Route: 048
  2. RISPERIDONE. [Suspect]
     Active Substance: RISPERIDONE
     Indication: SCHIZOPHRENIA
     Route: 048

REACTIONS (10)
  - Product availability issue [Unknown]
  - Emotional distress [Not Recovered/Not Resolved]
  - Irritability [Not Recovered/Not Resolved]
  - Insomnia [Not Recovered/Not Resolved]
  - Nervousness [Not Recovered/Not Resolved]
  - Speech disorder [Not Recovered/Not Resolved]
  - Feeling abnormal [Unknown]
  - Soliloquy [Unknown]
  - Drug dose omission [Unknown]
  - Expired product administered [Unknown]

NARRATIVE: CASE EVENT DATE: 2017
